FAERS Safety Report 7650665-6 (Version None)
Quarter: 2011Q3

REPORT INFORMATION
  Report Type: 
  Country: None (occurrence: None)
  Receive Date: 20110802
  Receipt Date: 20110725
  Transmission Date: 20111222
  Serious: Yes (Hospitalization, Other)
  Sender: FDA-Public Use
  Company Number: PHHY2011GR67599

PATIENT
  Age: 74 Year
  Sex: Male

DRUGS (4)
  1. TENOFOVIR DISOPROXIL FUMARATE [Suspect]
     Indication: HIV INFECTION
     Dosage: 300 MG, UNK
  2. METFORMIN HCL [Suspect]
     Indication: TYPE 2 DIABETES MELLITUS
     Dosage: 850 MG, TID
  3. EMTRICITABINE [Concomitant]
     Indication: HIV INFECTION
  4. EFAVIRENZ [Concomitant]
     Indication: HIV INFECTION

REACTIONS (16)
  - DEHYDRATION [None]
  - ABDOMINAL TENDERNESS [None]
  - NAUSEA [None]
  - HEART RATE INCREASED [None]
  - TACHYPNOEA [None]
  - OLIGURIA [None]
  - BLOOD PRESSURE DECREASED [None]
  - LACTIC ACIDOSIS [None]
  - RENAL FAILURE ACUTE [None]
  - ABDOMINAL PAIN [None]
  - ANURIA [None]
  - SKIN TURGOR DECREASED [None]
  - VOMITING [None]
  - MUCOUS MEMBRANE DISORDER [None]
  - PULMONARY HILAR ENLARGEMENT [None]
  - OXYGEN SATURATION DECREASED [None]
